FAERS Safety Report 8191899-4 (Version None)
Quarter: 2012Q1

REPORT INFORMATION
  Report Type: 
  Country: None (occurrence: None)
  Receive Date: 20120307
  Receipt Date: 20120222
  Transmission Date: 20120608
  Serious: Yes (Other)
  Sender: FDA-Public Use
  Company Number: PHEH2012US003627

PATIENT
  Sex: Male

DRUGS (8)
  1. RADIOTHERAPY [Concomitant]
  2. GLEEVEC [Suspect]
     Indication: BONE NEOPLASM MALIGNANT
     Dosage: 400 MG, QD
     Route: 048
     Dates: start: 20110811
  3. GLEEVEC [Suspect]
     Indication: MALIGNANT NEOPLASM OF AURICULAR CARTILAGE
  4. ANTHRACYCLINES [Suspect]
  5. CARVEDILOL [Concomitant]
  6. LISINOPRIL [Concomitant]
  7. OXYCODONE HCL [Concomitant]
  8. PROCHLORPERAZINE [Concomitant]

REACTIONS (7)
  - ARTHRALGIA [None]
  - NEOPLASM PROGRESSION [None]
  - BONE NEOPLASM MALIGNANT [None]
  - NEOPLASM MALIGNANT [None]
  - CARDIOMYOPATHY [None]
  - PRODUCTIVE COUGH [None]
  - VOMITING [None]
